FAERS Safety Report 18473702 (Version 1)
Quarter: 2020Q4

REPORT INFORMATION
  Report Type: Spontaneous
  Country: ES (occurrence: ES)
  Receive Date: 20201106
  Receipt Date: 20201106
  Transmission Date: 20210114
  Serious: Yes (Hospitalization)
  Sender: FDA-Public Use
  Company Number: ES-TEVA-2020-ES-1844805

PATIENT
  Age: 66 Year
  Sex: Male

DRUGS (1)
  1. ETOPOSIDO (518A) [Suspect]
     Active Substance: ETOPOSIDE
     Route: 065
     Dates: start: 20200724, end: 20200824

REACTIONS (2)
  - Hepatotoxicity [Recovered/Resolved]
  - Hepatic encephalopathy [Recovered/Resolved]

NARRATIVE: CASE EVENT DATE: 20200824
